FAERS Safety Report 5778842-X (Version None)
Quarter: 2008Q2

REPORT INFORMATION
  Report Type: 
  Country: None (occurrence: None)
  Receive Date: 20080617
  Receipt Date: 20080606
  Transmission Date: 20081010
  Serious: Yes (Hospitalization)
  Sender: FDA-Public Use
  Company Number: 163-21880-08040772

PATIENT
  Age: 51 Year
  Sex: Female

DRUGS (18)
  1. REVLIMID [Suspect]
     Indication: MULTIPLE MYELOMA
     Dosage: 25 MG, DAILY, ORAL; 15 MG, DAILY, ORAL; 5MG-10MG, DAILY, ORAL
     Route: 048
     Dates: start: 20080103, end: 20080101
  2. REVLIMID [Suspect]
     Indication: MULTIPLE MYELOMA
     Dosage: 25 MG, DAILY, ORAL; 15 MG, DAILY, ORAL; 5MG-10MG, DAILY, ORAL
     Route: 048
     Dates: start: 20080130, end: 20080401
  3. REVLIMID [Suspect]
     Indication: MULTIPLE MYELOMA
     Dosage: 25 MG, DAILY, ORAL; 15 MG, DAILY, ORAL; 5MG-10MG, DAILY, ORAL
     Route: 048
     Dates: start: 20080401
  4. REVLIMID [Suspect]
  5. DURAGESIC (FENTANYL) (POULTICE OR PATCH) [Concomitant]
  6. DECADRON [Concomitant]
  7. LASIX [Concomitant]
  8. POTASSIUM (POTASSIUM) [Concomitant]
  9. PROTONIX [Concomitant]
  10. COLACE (DOCUSATE SODIUM) [Concomitant]
  11. LORTAB [Concomitant]
  12. AVANDAMET [Concomitant]
  13. ASPIRIN [Concomitant]
  14. PERCOCET [Concomitant]
  15. AVANDAMET [Concomitant]
  16. OXYCONTIN [Concomitant]
  17. OXYCODONE HCL [Concomitant]
  18. ZOMETA [Concomitant]

REACTIONS (8)
  - ASTHENIA [None]
  - CONFUSIONAL STATE [None]
  - CONVULSION [None]
  - FATIGUE [None]
  - HEADACHE [None]
  - INFECTION [None]
  - MENTAL STATUS CHANGES [None]
  - NAUSEA [None]
